FAERS Safety Report 23470832 (Version 3)
Quarter: 2024Q2

REPORT INFORMATION
  Report Type: Report from Study
  Country: US (occurrence: US)
  Receive Date: 20240202
  Receipt Date: 20240402
  Transmission Date: 20240716
  Serious: Yes (Other)
  Sender: FDA-Public Use
  Company Number: US-TG THERAPEUTICS INC.-TGT003248

PATIENT
  Age: 40 Year
  Sex: Male
  Weight: 104.76 kg

DRUGS (5)
  1. UBLITUXIMAB [Suspect]
     Active Substance: UBLITUXIMAB
     Indication: Multiple sclerosis
     Dosage: 150 MILLIGRAM
     Route: 042
     Dates: start: 20230816, end: 20230816
  2. UBLITUXIMAB [Suspect]
     Active Substance: UBLITUXIMAB
     Dosage: 450 MILLIGRAM, Q24 WEEKS
     Route: 042
     Dates: start: 20230830, end: 20230830
  3. ADVAIR HFA [Concomitant]
     Active Substance: FLUTICASONE PROPIONATE\SALMETEROL XINAFOATE
     Indication: Asthma
     Dosage: 113 MCG/14 MCG,1 PUFF, BID
  4. ALBUTEROL SULFATE [Concomitant]
     Active Substance: ALBUTEROL SULFATE
     Indication: Asthma
     Dosage: 90 MICROGRAM, 1-2 PUFFS, Q 4-6 HR PRN
  5. PREGABALIN [Concomitant]
     Active Substance: PREGABALIN
     Indication: Neuralgia
     Dosage: 25 MILLIGRAM, 1 CAPSULE, TID
     Route: 048

REACTIONS (2)
  - Superficial vein thrombosis [Recovered/Resolved]
  - Influenza [Recovered/Resolved]

NARRATIVE: CASE EVENT DATE: 20231206
